FAERS Safety Report 15280844 (Version 3)
Quarter: 2018Q4

REPORT INFORMATION
  Report Type: Spontaneous
  Country: JP (occurrence: JP)
  Receive Date: 20180815
  Receipt Date: 20181227
  Transmission Date: 20190204
  Serious: Yes (Death, Life-Threatening, Other)
  Sender: FDA-Public Use
  Company Number: JP-009507513-1805JPN002612J

PATIENT
  Age: 61 Year
  Sex: Male

DRUGS (3)
  1. NEXIUM [Concomitant]
     Active Substance: ESOMEPRAZOLE MAGNESIUM
     Indication: PROPHYLAXIS AGAINST GASTROINTESTINAL ULCER
     Dosage: 200 MILLIGRAM, QD
     Route: 048
     Dates: start: 20180315
  2. DECADRON [Concomitant]
     Active Substance: DEXAMETHASONE
     Indication: PROPHYLAXIS
     Dosage: 0.5 MILLIGRAM, QID
     Route: 048
     Dates: start: 20180315
  3. KEYTRUDA [Suspect]
     Active Substance: PEMBROLIZUMAB
     Indication: LUNG NEOPLASM MALIGNANT
     Dosage: 200 MILLIGRAM, Q3W
     Route: 041
     Dates: start: 20180403, end: 20180518

REACTIONS (7)
  - Pericarditis malignant [Unknown]
  - Thrombosis [Unknown]
  - Renal impairment [Not Recovered/Not Resolved]
  - Blood fibrinogen decreased [Recovered/Resolved]
  - Malignant neoplasm progression [Fatal]
  - Disseminated intravascular coagulation [Unknown]
  - Immune-mediated adverse reaction [Unknown]

NARRATIVE: CASE EVENT DATE: 2018
